FAERS Safety Report 11927030 (Version 8)
Quarter: 2016Q1

REPORT INFORMATION
  Report Type: Report from Study
  Country: DE (occurrence: DE)
  Receive Date: 20160119
  Receipt Date: 20160322
  Transmission Date: 20160526
  Serious: Yes (Hospitalization)
  Sender: FDA-Public Use
  Company Number: DE-ROCHE-1695521

PATIENT
  Age: 71 Year
  Sex: Female
  Weight: 54 kg

DRUGS (14)
  1. FERINJECT [Concomitant]
     Active Substance: FERRIC CARBOXYMALTOSE
     Route: 065
     Dates: start: 20151221, end: 20151221
  2. PACLITAXEL. [Suspect]
     Active Substance: PACLITAXEL
     Indication: HER-2 POSITIVE BREAST CANCER
     Dosage: DATE OF LAST DOSE PRIOR TO SAE: 04/JAN/2016
     Route: 042
     Dates: start: 20151012, end: 20160111
  3. DOXORUBICIN HYDROCHLORIDE. [Suspect]
     Active Substance: DOXORUBICIN HYDROCHLORIDE
     Dosage: ON //2016, DOSE WAS REDUCED TO 15 MGM2
     Route: 042
     Dates: start: 20160118, end: 20160125
  4. PERTUZUMAB [Suspect]
     Active Substance: PERTUZUMAB
     Dosage: MAINTAINENCE DOSE ?DATE OF LAST DOSE PRIOR TO SAE: 04/JAN/2016
     Route: 042
     Dates: end: 20160111
  5. PERTUZUMAB [Suspect]
     Active Substance: PERTUZUMAB
     Dosage: DATE OF LAST DOSE PRIOR TO PURULENT TONSILITIS: 18/JAN/2016
     Route: 042
     Dates: start: 2016, end: 20160125
  6. TRASTUZUMAB [Suspect]
     Active Substance: TRASTUZUMAB
     Indication: HER-2 POSITIVE BREAST CANCER
     Dosage: LOADING DOSE
     Route: 042
     Dates: start: 20151012
  7. TRASTUZUMAB [Suspect]
     Active Substance: TRASTUZUMAB
     Dosage: DATE OF LAST DOSE PRIOR TOPURULENT TONSILITIS: 04/JAN/2016
     Route: 042
     Dates: start: 2016, end: 20160125
  8. DOXORUBICIN HYDROCHLORIDE. [Suspect]
     Active Substance: DOXORUBICIN HYDROCHLORIDE
     Indication: HER-2 POSITIVE BREAST CANCER
     Dosage: DATE OF LAST DOSE PRIOR TO SAE: 04/JAN/2016
     Route: 042
     Dates: start: 20151012, end: 20160111
  9. PERTUZUMAB [Suspect]
     Active Substance: PERTUZUMAB
     Dosage: RESTARTED
     Route: 042
     Dates: start: 20160201
  10. TRASTUZUMAB [Suspect]
     Active Substance: TRASTUZUMAB
     Dosage: RESTARTED
     Route: 042
     Dates: start: 20160201
  11. CLEXANE [Concomitant]
     Active Substance: ENOXAPARIN SODIUM
     Route: 065
     Dates: start: 20160108
  12. PERTUZUMAB [Suspect]
     Active Substance: PERTUZUMAB
     Indication: HER-2 POSITIVE BREAST CANCER
     Dosage: LOADING DOSE
     Route: 042
     Dates: start: 20151012, end: 20151012
  13. TRASTUZUMAB [Suspect]
     Active Substance: TRASTUZUMAB
     Dosage: MAINTAINENCE DOSE?DATE OF LAST DOSE PRIOR TO SAE: 04/JAN/2016
     Route: 042
     Dates: end: 20160111
  14. PACLITAXEL. [Suspect]
     Active Substance: PACLITAXEL
     Dosage: ON //2016, DOSE WAS REDUCED TO 60 MGM2
     Route: 042
     Dates: start: 20160118, end: 20160125

REACTIONS (3)
  - Tonsillitis bacterial [Recovered/Resolved]
  - Embolism [Recovered/Resolved]
  - Diarrhoea [Recovered/Resolved]

NARRATIVE: CASE EVENT DATE: 20160108
